FAERS Safety Report 21286509 (Version 6)
Quarter: 2022Q4

REPORT INFORMATION
  Report Type: Spontaneous
  Country: GB (occurrence: GB)
  Receive Date: 20220902
  Receipt Date: 20221103
  Transmission Date: 20230113
  Serious: Yes (Death, Hospitalization, Other)
  Sender: FDA-Public Use
  Company Number: GB-MYLANLABS-2022M1048786

PATIENT
  Age: 79 Year
  Sex: Male

DRUGS (1)
  1. CLOZARIL [Suspect]
     Active Substance: CLOZAPINE
     Indication: Schizophrenia
     Dosage: UNK
     Route: 048
     Dates: start: 20181116

REACTIONS (8)
  - Death [Fatal]
  - Dementia [Unknown]
  - Aspiration [Unknown]
  - Somnolence [Unknown]
  - Fall [Unknown]
  - Confusional state [Unknown]
  - Pneumonia [Unknown]
  - White blood cell count decreased [Recovered/Resolved]

NARRATIVE: CASE EVENT DATE: 20220923
